FAERS Safety Report 22039783 (Version 1)
Quarter: 2023Q1

REPORT INFORMATION
  Report Type: Spontaneous
  Country: US (occurrence: None)
  Receive Date: 20230224
  Receipt Date: 20230224
  Transmission Date: 20230418
  Serious: No
  Sender: FDA-Public Use
  Company Number: None

PATIENT
  Age: 47 Year
  Sex: 0
  Weight: 51.75 kg

DRUGS (12)
  1. GADAVIST [Suspect]
     Active Substance: GADOBUTROL
     Indication: Magnetic resonance imaging
     Dates: start: 20230223, end: 20230223
  2. birth control active pills only [Concomitant]
  3. KLONOPIN [Concomitant]
     Active Substance: CLONAZEPAM
  4. SUMATRIPTAN [Concomitant]
     Active Substance: SUMATRIPTAN
  5. ZOFRAN [Concomitant]
     Active Substance: ONDANSETRON HYDROCHLORIDE
  6. CALCIUM CARBONATE [Concomitant]
     Active Substance: CALCIUM CARBONATE
  7. VITAMIN D NOS [Concomitant]
     Active Substance: VITAMIN D NOS
  8. MAGNESIUM CITRATE [Concomitant]
     Active Substance: MAGNESIUM CITRATE
  9. ZINC OXIDE [Concomitant]
     Active Substance: ZINC OXIDE
  10. FOLIC ACID [Concomitant]
     Active Substance: FOLIC ACID
  11. CHONDROITIN [Concomitant]
     Active Substance: CHONDROITIN
  12. DIETARY SUPPLEMENT\HERBALS\INDIAN FRANKINCENSE [Concomitant]
     Active Substance: DIETARY SUPPLEMENT\HERBALS\INDIAN FRANKINCENSE

REACTIONS (6)
  - Nausea [None]
  - Pain [None]
  - Abdominal pain upper [None]
  - Gastrointestinal pain [None]
  - Fatigue [None]
  - Contrast media reaction [None]

NARRATIVE: CASE EVENT DATE: 20230223
